FAERS Safety Report 4309835-7 (Version None)
Quarter: 2004Q1

REPORT INFORMATION
  Report Type: 
  Country: None (occurrence: None)
  Receive Date: 20040303
  Receipt Date: 20040223
  Transmission Date: 20041129
  Serious: Yes (Death, Hospitalization)
  Sender: FDA-Public Use
  Company Number: 200410724FR

PATIENT
  Age: 59 Year
  Sex: Male
  Weight: 68 kg

DRUGS (6)
  1. TAXOTERE [Suspect]
     Indication: BRONCHIAL CARCINOMA
     Route: 042
     Dates: start: 20031107, end: 20040108
  2. ZOPHREN [Suspect]
     Indication: NAUSEA
     Route: 048
     Dates: start: 20040108, end: 20040113
  3. PROZAC [Concomitant]
     Route: 048
  4. NEXIUM [Concomitant]
     Route: 048
     Dates: end: 20040115
  5. SOLUPRED [Concomitant]
     Route: 048
     Dates: end: 20040110
  6. ANAFRANIL [Concomitant]
     Route: 048
     Dates: end: 20040112

REACTIONS (9)
  - ALKALOSIS [None]
  - BLOOD GLUCOSE INCREASED [None]
  - BLOOD UREA INCREASED [None]
  - LUNG DISORDER [None]
  - NAUSEA [None]
  - NORMOCHROMIC NORMOCYTIC ANAEMIA [None]
  - OXYGEN SATURATION DECREASED [None]
  - PAIN [None]
  - PNEUMONITIS [None]
